FAERS Safety Report 16259086 (Version 1)
Quarter: 2019Q2

REPORT INFORMATION
  Report Type: Report from Study
  Country: None (occurrence: BR)
  Receive Date: 20190501
  Receipt Date: 20190501
  Transmission Date: 20190711
  Serious: Yes (Other)
  Sender: FDA-Public Use
  Company Number: BR-ABBVIE-19K-020-2759527-00

PATIENT
  Sex: Male
  Weight: 125 kg

DRUGS (1)
  1. HUMIRA [Suspect]
     Active Substance: ADALIMUMAB
     Indication: COLITIS ULCERATIVE
     Route: 058

REACTIONS (6)
  - Abdominal adhesions [Unknown]
  - Retching [Recovering/Resolving]
  - Back pain [Recovering/Resolving]
  - Appendicitis [Unknown]
  - Complicated appendicitis [Unknown]
  - Bed rest [Unknown]

NARRATIVE: CASE EVENT DATE: 20190401
